FAERS Safety Report 5835587-5 (Version None)
Quarter: 2008Q3

REPORT INFORMATION
  Report Type: 
  Country: None (occurrence: None)
  Receive Date: 20080806
  Receipt Date: 20080725
  Transmission Date: 20090109
  Serious: Yes (Death)
  Sender: FDA-Public Use
  Company Number: FR-WYE-H05183808

PATIENT
  Sex: Female
  Weight: 1.67 kg

DRUGS (2)
  1. EFFEXOR [Suspect]
     Dosage: 4.5 G (90 TABLETS)
     Route: 064
     Dates: start: 20060509, end: 20060509
  2. RIVOTRIL [Concomitant]
     Indication: CONVULSION
     Route: 064
     Dates: start: 20060509, end: 20060509

REACTIONS (2)
  - DRUG TOXICITY [None]
  - INTRA-UTERINE DEATH [None]
